FAERS Safety Report 6571450-2 (Version None)
Quarter: 2010Q1

REPORT INFORMATION
  Report Type: 
  Country: None (occurrence: None)
  Receive Date: 20100205
  Receipt Date: 20100129
  Transmission Date: 20100710
  Serious: Yes (Other)
  Sender: FDA-Public Use
  Company Number: US-TEVA-222854USA

PATIENT
  Sex: Female

DRUGS (5)
  1. MIRTAZAPINE [Suspect]
     Route: 048
  2. ZOLPIDEM TARTRATE [Concomitant]
  3. ATENOLOL [Concomitant]
  4. DOXEPIN HCL [Concomitant]
  5. CLOPIDOGREL [Concomitant]

REACTIONS (3)
  - BREAST CANCER [None]
  - BREAST CYST [None]
  - BREAST DISCHARGE [None]
